FAERS Safety Report 5377704-X (Version None)
Quarter: 2007Q3

REPORT INFORMATION
  Report Type: 
  Country: None (occurrence: None)
  Receive Date: 20070703
  Receipt Date: 20070629
  Transmission Date: 20080115
  Serious: Yes (Death)
  Sender: FDA-Public Use
  Company Number: US-ROXANE LABORATORIES, INC-2007-BP-16482RO

PATIENT
  Sex: Male

DRUGS (3)
  1. ROXICET [Suspect]
     Indication: PROCEDURAL PAIN
     Route: 048
     Dates: start: 20051001, end: 20051001
  2. DURAGESIC-100 [Suspect]
     Indication: PROCEDURAL PAIN
     Dosage: 75 MCG/HR
     Route: 061
     Dates: start: 20051001, end: 20051001
  3. ANTIBIOTIC [Concomitant]
     Dates: start: 20051001

REACTIONS (1)
  - DRUG TOXICITY [None]
